FAERS Safety Report 6189631-9 (Version None)
Quarter: 2009Q2

REPORT INFORMATION
  Report Type: 
  Country: None (occurrence: None)
  Receive Date: 20090512
  Receipt Date: 20090512
  Transmission Date: 20091009
  Serious: Yes (Other)
  Sender: FDA-Public Use
  Company Number: None

PATIENT
  Sex: Male
  Weight: 90.7194 kg

DRUGS (2)
  1. SERTRALINE [Suspect]
     Indication: ANXIETY
     Dosage: 225MG DAILY PO
     Route: 048
     Dates: start: 20090102, end: 20090510
  2. SERTRALINE [Suspect]
     Indication: PANIC ATTACK
     Dosage: 225MG DAILY PO
     Route: 048
     Dates: start: 20090102, end: 20090510

REACTIONS (6)
  - ANXIETY [None]
  - DYSPNOEA [None]
  - ECONOMIC PROBLEM [None]
  - IMPATIENCE [None]
  - IRRITABILITY [None]
  - PRODUCT SUBSTITUTION ISSUE [None]
